FAERS Safety Report 6361974-5 (Version None)
Quarter: 2009Q3

REPORT INFORMATION
  Report Type: 
  Country: None (occurrence: None)
  Receive Date: 20090918
  Receipt Date: 20090909
  Transmission Date: 20100115
  Serious: Yes (Other)
  Sender: FDA-Public Use
  Company Number: US-WYE-H10932309

PATIENT
  Age: 57 Year
  Sex: Male
  Weight: 79.45 kg

DRUGS (3)
  1. ADVIL PM [Suspect]
     Indication: INSOMNIA
     Dosage: 1 CAPLET DAILY
     Route: 048
     Dates: start: 20080101, end: 20090101
  2. ADVIL PM [Suspect]
     Indication: MYALGIA
     Dosage: UNKNOWN
     Route: 048
     Dates: start: 20090101, end: 20090903
  3. ADVIL PM [Suspect]
     Indication: ARTHRALGIA

REACTIONS (1)
  - DRUG DEPENDENCE [None]
